FAERS Safety Report 8394651-X (Version None)
Quarter: 2012Q2

REPORT INFORMATION
  Report Type: 
  Country: None (occurrence: None)
  Receive Date: 20120530
  Receipt Date: 20120524
  Transmission Date: 20120825
  Serious: Yes (Other)
  Sender: FDA-Public Use
  Company Number: JP-PFIZER INC-2012125191

PATIENT
  Age: 29 Year
  Sex: Female

DRUGS (4)
  1. GENOTROPIN [Suspect]
     Dosage: 0.2 MG, DAILY
     Route: 058
     Dates: start: 20120329
  2. LEVOTHYROXINE SODIUM [Concomitant]
     Route: 048
  3. HYDROCORTISONE [Concomitant]
     Route: 048
  4. ESTRANA [Concomitant]
     Route: 062

REACTIONS (2)
  - PITUITARY TUMOUR RECURRENT [None]
  - TUMOUR HAEMORRHAGE [None]
